FAERS Safety Report 15630996 (Version 3)
Quarter: 2019Q3

REPORT INFORMATION
  Report Type: Spontaneous
  Country: HU (occurrence: HU)
  Receive Date: 20181119
  Receipt Date: 20190930
  Transmission Date: 20191004
  Serious: Yes (Death, Hospitalization)
  Sender: FDA-Public Use
  Company Number: HU-B.I. PHARMACEUTICALS,INC./RIDGEFIELD-2018-BI-055898

PATIENT
  Age: 67 Year
  Sex: Female

DRUGS (1)
  1. PRADAXA [Suspect]
     Active Substance: DABIGATRAN ETEXILATE MESYLATE
     Indication: DEEP VEIN THROMBOSIS
     Route: 065
     Dates: start: 201505

REACTIONS (7)
  - Hepatomegaly [Unknown]
  - Cardiac failure [Fatal]
  - Hepatic cyst [Unknown]
  - Laboratory test abnormal [Unknown]
  - Atrial fibrillation [Fatal]
  - Pericardial effusion [Unknown]
  - Ascites [Unknown]
